FAERS Safety Report 8455083-9 (Version None)
Quarter: 2012Q2

REPORT INFORMATION
  Report Type: 
  Country: None (occurrence: None)
  Receive Date: 20120621
  Receipt Date: 20120615
  Transmission Date: 20120825
  Serious: Yes (Hospitalization)
  Sender: FDA-Public Use
  Company Number: US-CELGENEUS-163-21880-12062707

PATIENT
  Sex: Female

DRUGS (14)
  1. REVLIMID [Suspect]
     Dosage: 15 MILLIGRAM
     Route: 048
     Dates: start: 20110324, end: 20110101
  2. OXYCODONE HCL [Concomitant]
     Route: 065
  3. SIMVASTATIN [Concomitant]
     Route: 065
  4. LOVENOX [Concomitant]
     Route: 065
  5. REVLIMID [Suspect]
     Dosage: 10 MILLIGRAM
     Route: 048
     Dates: start: 20111001, end: 20120101
  6. RANEXA [Concomitant]
     Route: 065
  7. ZOMETA [Concomitant]
     Route: 065
  8. VITAMIN D [Concomitant]
     Route: 065
  9. RANEXA [Concomitant]
     Route: 065
  10. REVLIMID [Suspect]
     Dosage: 15 MILLIGRAM
     Route: 048
     Dates: start: 20120501
  11. VITAMIN D [Concomitant]
     Route: 065
  12. OXYCODONE HCL [Concomitant]
     Route: 065
  13. ZOMETA [Concomitant]
     Route: 065
  14. SIMVASTATIN [Concomitant]
     Route: 065

REACTIONS (1)
  - JOINT SWELLING [None]
